FAERS Safety Report 7440949-9 (Version None)
Quarter: 2011Q2

REPORT INFORMATION
  Report Type: 
  Country: None (occurrence: None)
  Receive Date: 20110427
  Receipt Date: 20110426
  Transmission Date: 20111010
  Serious: Yes (Life-Threatening, Hospitalization, Other)
  Sender: FDA-Public Use
  Company Number: PHHO2011GB06766

PATIENT
  Sex: Female

DRUGS (14)
  1. GLEEVEC [Suspect]
     Indication: ACUTE LYMPHOCYTIC LEUKAEMIA
     Dosage: UNK
     Route: 048
     Dates: end: 20110415
  2. CYTARABINE [Concomitant]
  3. PREDNISOLONE [Concomitant]
  4. GELCLAIR [Concomitant]
  5. RANITIDINE [Concomitant]
  6. TPN [Concomitant]
  7. MAGNESIUM GLYCEROPHOSPHATE [Concomitant]
  8. ACICLOVIR [Concomitant]
  9. SUCRALFATE [Concomitant]
  10. POTASSIUM [Concomitant]
  11. ONDANSETRON [Concomitant]
  12. MORPHINE [Concomitant]
  13. CETIRIZINE HCL [Concomitant]
  14. BUSCOPAN [Concomitant]

REACTIONS (3)
  - NEUTROPENIA [None]
  - SEPTIC SHOCK [None]
  - MUCOSAL INFLAMMATION [None]
